FAERS Safety Report 9553354 (Version 2)
Quarter: 2014Q1

REPORT INFORMATION
  Report Type: Spontaneous
  Country: US (occurrence: None)
  Receive Date: 20130805
  Receipt Date: 20140122
  Transmission Date: 20141002
  Serious: No
  Sender: FDA-Public Use
  Company Number: AEGR000051

PATIENT
  Age: 49 Year
  Sex: Male

DRUGS (15)
  1. JUXTAPID (LOMITAPIDE) CAPSULE, 5MG [Suspect]
     Indication: TYPE IIA HYPERLIPIDAEMIA
     Route: 048
     Dates: start: 20130312, end: 20130510
  2. MULTIVITAMIN VITAMINS NOS) [Concomitant]
  3. ALPRAZOLAM (ALPRAZOLAM) [Concomitant]
  4. LOVAZA (OMEGA-3-ACID ETHY ESTER) [Concomitant]
  5. ZETIA (EZETIMIBE) [Concomitant]
  6. CRESTOR (ROSUVASTATIN CALCIUM) [Concomitant]
  7. METOPROLOL (METOPROLOL TARTRATE) [Concomitant]
  8. MELATONIN (MELATONIN) [Concomitant]
  9. NEXIUM (ESOMEPRAZOLE MAGNESIUM) [Concomitant]
  10. MAGNESIUM (MAGNESIUM CHELATE) [Concomitant]
  11. HYDROCODONE (HYDROCODONE BITARTRATE) [Concomitant]
  12. WELCHOL (COLESEVELAM HYDROCHLORIDE) [Concomitant]
  13. PLAVIX (CLOPIDOGREL BISULFATE) [Concomitant]
  14. ASPIRIN (ACETYLSALICYLIC ACID) [Concomitant]
  15. FISH OIL (FISH OIL) [Concomitant]

REACTIONS (2)
  - Aspartate aminotransferase increased [None]
  - Alanine aminotransferase increased [None]
